FAERS Safety Report 19511941 (Version 2)
Quarter: 2021Q3

REPORT INFORMATION
  Report Type: Spontaneous
  Country: CN (occurrence: CN)
  Receive Date: 20210709
  Receipt Date: 20210914
  Transmission Date: 20211014
  Serious: Yes (Hospitalization, Other)
  Sender: FDA-Public Use
  Company Number: CN-ASTELLAS-2021US025096

PATIENT
  Age: 83 Year
  Sex: Male

DRUGS (1)
  1. XTANDI [Suspect]
     Active Substance: ENZALUTAMIDE
     Indication: PROSTATE CANCER
     Dosage: 160 UNK, ONCE DAILY
     Route: 048
     Dates: start: 20210401, end: 20210617

REACTIONS (4)
  - Foaming at mouth [Unknown]
  - Muscle twitching [Unknown]
  - Seizure [Unknown]
  - Loss of consciousness [Unknown]
